FAERS Safety Report 7635953-1 (Version None)
Quarter: 2011Q3

REPORT INFORMATION
  Report Type: 
  Country: None (occurrence: None)
  Receive Date: 20110719
  Receipt Date: 20110711
  Transmission Date: 20111222
  Serious: Yes (Death)
  Sender: FDA-Public Use
  Company Number: 2011VX001988

PATIENT
  Age: 65 Year
  Sex: Male

DRUGS (7)
  1. EDECRIN [Suspect]
     Indication: PRODUCT USED FOR UNKNOWN INDICATION
     Dosage: 50 MG;QD; 50 MG; BID
     Dates: end: 19660721
  2. MERSALYL [Concomitant]
  3. EFFEVESCENT POTASSIUM SALT [Concomitant]
  4. ALEVAIRE INHALATIONS [Concomitant]
  5. OCYGEN [Concomitant]
  6. DIGOXIN [Concomitant]
  7. TETRACYCLINE [Concomitant]

REACTIONS (13)
  - SHOCK [None]
  - INFECTIOUS PERITONITIS [None]
  - PELVIC VENOUS THROMBOSIS [None]
  - PLATELET COUNT DECREASED [None]
  - GASTRIC ULCER HAEMORRHAGE [None]
  - DUODENAL ULCER [None]
  - PERICARDITIS [None]
  - GENERAL PHYSICAL HEALTH DETERIORATION [None]
  - HEPATIC STEATOSIS [None]
  - GASTRIC ULCER PERFORATION [None]
  - PULMONARY INFARCTION [None]
  - PURPURA [None]
  - ECCHYMOSIS [None]
